FAERS Safety Report 5494908-6 (Version None)
Quarter: 2007Q4

REPORT INFORMATION
  Report Type: 
  Country: None (occurrence: None)
  Receive Date: 20071024
  Receipt Date: 20071023
  Transmission Date: 20080405
  Serious: Yes (Death, Life-Threatening)
  Sender: FDA-Public Use
  Company Number: US-ASTRAZENECA-2007UW18230

PATIENT

DRUGS (3)
  1. SEROQUEL [Suspect]
     Route: 048
     Dates: end: 20061105
  2. LUNESTA [Suspect]
     Route: 048
     Dates: start: 20061101, end: 20061105
  3. DIPHENHYDRAMINE HCL [Suspect]
     Dates: end: 20061105

REACTIONS (1)
  - MULTIPLE DRUG OVERDOSE [None]
